FAERS Safety Report 12144556 (Version 5)
Quarter: 2016Q2

REPORT INFORMATION
  Report Type: Spontaneous
  Country: AU (occurrence: AU)
  Receive Date: 20160304
  Receipt Date: 20160628
  Transmission Date: 20160815
  Serious: Yes (Other)
  Sender: FDA-Public Use
  Company Number: AU-ACTELION-A-CH2016-132126

PATIENT
  Age: 37 Year
  Sex: Female

DRUGS (2)
  1. WARFARIN [Concomitant]
     Active Substance: WARFARIN
     Indication: PULMONARY ARTERIAL HYPERTENSION
     Dosage: UNK
     Route: 048
     Dates: start: 2012
  2. OPSUMIT [Suspect]
     Active Substance: MACITENTAN
     Indication: PULMONARY ARTERIAL HYPERTENSION
     Dosage: 10 MG, OD
     Route: 048
     Dates: start: 201512, end: 20160211

REACTIONS (15)
  - Eye pain [Not Recovered/Not Resolved]
  - Liver function test increased [Recovering/Resolving]
  - Alanine aminotransferase increased [Recovering/Resolving]
  - Gamma-glutamyltransferase increased [Recovering/Resolving]
  - Dyspnoea [Not Recovered/Not Resolved]
  - International normalised ratio decreased [Unknown]
  - Biopsy liver abnormal [Unknown]
  - Lethargy [Unknown]
  - Blood bilirubin increased [Recovering/Resolving]
  - Dizziness [Unknown]
  - Aspartate aminotransferase increased [Recovering/Resolving]
  - Blood albumin decreased [Not Recovered/Not Resolved]
  - Asthenia [Unknown]
  - Headache [Not Recovered/Not Resolved]
  - Autoimmune hepatitis [Unknown]

NARRATIVE: CASE EVENT DATE: 20160113
